FAERS Safety Report 23778489 (Version 6)
Quarter: 2025Q1

REPORT INFORMATION
  Report Type: Report from Study
  Country: CA (occurrence: CA)
  Receive Date: 20240424
  Receipt Date: 20250211
  Transmission Date: 20250408
  Serious: Yes (Other)
  Sender: TAKEDA
  Company Number: CA-TAKEDA-2024TUS038014

PATIENT
  Age: 24 Year
  Sex: Male

DRUGS (7)
  1. VEDOLIZUMAB [Suspect]
     Active Substance: VEDOLIZUMAB
     Indication: Crohn^s disease
  2. VEDOLIZUMAB [Suspect]
     Active Substance: VEDOLIZUMAB
     Dosage: 300 MILLIGRAM, Q6WEEKS
     Dates: start: 20240501
  3. VEDOLIZUMAB [Suspect]
     Active Substance: VEDOLIZUMAB
     Dosage: 300 MILLIGRAM, Q6WEEKS
  4. VEDOLIZUMAB [Suspect]
     Active Substance: VEDOLIZUMAB
     Dosage: 300 MILLIGRAM, Q4WEEKS
     Dates: start: 20241116
  5. VITAMIN D [Concomitant]
     Active Substance: VITAMIN D NOS
  6. VITAMIN B12 [Concomitant]
     Active Substance: CYANOCOBALAMIN
  7. FERRIC POLYSACCHARIDE COMPLEX [Concomitant]
     Active Substance: FERRIC POLYSACCHARIDE COMPLEX

REACTIONS (4)
  - Crohn^s disease [Unknown]
  - Chronic traumatic encephalopathy [Unknown]
  - Off label use [Unknown]
  - Iron deficiency anaemia [Not Recovered/Not Resolved]

NARRATIVE: CASE EVENT DATE: 20240501
